FAERS Safety Report 9069240 (Version 1)
Quarter: 2013Q1

REPORT INFORMATION
  Report Type: Report from Study
  Country: US (occurrence: US)
  Receive Date: 20130131
  Receipt Date: 20130131
  Transmission Date: 20140127
  Serious: No
  Sender: FDA-Public Use
  Company Number: US-ABBOTT-12P-163-0999851-00

PATIENT
  Age: 42 Year
  Sex: Male

DRUGS (12)
  1. HUMIRA [Suspect]
     Indication: CROHN^S DISEASE
     Dates: start: 20120823
  2. PENTASA [Concomitant]
     Indication: CROHN^S DISEASE
  3. CARDIZEM CD [Concomitant]
     Indication: CARDIAC DISORDER
  4. CARDIZEM CD [Concomitant]
     Indication: MYOCARDIAL INFARCTION
  5. ASA [Concomitant]
     Indication: ISCHAEMIC HEART DISEASE PROPHYLAXIS
  6. PRILOSEC [Concomitant]
     Indication: GASTROOESOPHAGEAL REFLUX DISEASE
  7. INDERAL LA [Concomitant]
     Indication: MIGRAINE PROPHYLAXIS
  8. ZOLOFT [Concomitant]
     Indication: DEPRESSION
  9. ALBUTEROL [Concomitant]
     Indication: ASTHMA
  10. NITROGLYCERIN [Concomitant]
     Indication: PRODUCT USED FOR UNKNOWN INDICATION
  11. IBUPROFEN [Concomitant]
     Indication: PRODUCT USED FOR UNKNOWN INDICATION
  12. ZOFRAN [Concomitant]
     Indication: NAUSEA
     Route: 060

REACTIONS (1)
  - Bronchitis [Recovering/Resolving]
